FAERS Safety Report 15576320 (Version 1)
Quarter: 2018Q4

REPORT INFORMATION
  Report Type: Spontaneous
  Country: US (occurrence: US)
  Receive Date: 20181101
  Receipt Date: 20181101
  Transmission Date: 20190205
  Serious: No
  Sender: FDA-Public Use
  Company Number: US-PFIZER INC-2018437488

PATIENT
  Age: 71 Year
  Sex: Female
  Weight: 71.67 kg

DRUGS (1)
  1. SULFASALAZINE. [Suspect]
     Active Substance: SULFASALAZINE
     Indication: COLITIS ULCERATIVE
     Dosage: 1 DF, DAILY (1 PILL A DAY)

REACTIONS (7)
  - Chromaturia [Unknown]
  - Myalgia [Unknown]
  - Headache [Unknown]
  - Fatigue [Unknown]
  - Influenza [Unknown]
  - Abdominal discomfort [Unknown]
  - Drug ineffective [Unknown]
